FAERS Safety Report 20489151 (Version 1)
Quarter: 2022Q1

REPORT INFORMATION
  Report Type: Spontaneous
  Country: CA (occurrence: None)
  Receive Date: 20220218
  Receipt Date: 20220218
  Transmission Date: 20220424
  Serious: Yes (Other)
  Sender: FDA-Public Use
  Company Number: CA-INFO-001400

PATIENT
  Age: 31 Year
  Sex: Female

DRUGS (2)
  1. CIPROFLOXACIN [Suspect]
     Active Substance: CIPROFLOXACIN
     Indication: Urinary tract infection
     Route: 065
  2. BOTULINUM TOXIN TYPE A [Suspect]
     Active Substance: BOTULINUM TOXIN TYPE A
     Indication: Hyperhidrosis
     Dosage: 50U IN EACH AXILLA; AFTER 2 MONTHS 100U IN EACH OF HER PALMS (2:1 DILUTION) AND 50U IN EACH AXILLA
     Route: 023

REACTIONS (1)
  - Botulism [Recovered/Resolved]
